FAERS Safety Report 9319078 (Version 1)
Quarter: 2013Q2

REPORT INFORMATION
  Report Type: Spontaneous
  Country: US (occurrence: None)
  Receive Date: 20130524
  Receipt Date: 20130524
  Transmission Date: 20140414
  Serious: Yes (Other)
  Sender: FDA-Public Use
  Company Number: 20130244

PATIENT
  Age: 74 Year
  Sex: Female

DRUGS (2)
  1. VENOFER (IRON SUCROSE INJECTION, USP) (2340-10) 20 MG/ML [Suspect]
     Indication: IRON DEFICIENCY ANAEMIA
     Dosage: 200 MG IV PUSH ?
     Route: 040
     Dates: start: 20130205, end: 20130205
  2. VENOFER (IRON SUCROSE INJECTION, USP) (2340-10) 20 MG/ML [Suspect]
     Indication: RENAL FAILURE CHRONIC
     Dosage: 200 MG IV PUSH ?
     Route: 040
     Dates: start: 20130205, end: 20130205

REACTIONS (3)
  - Unresponsive to stimuli [None]
  - Blood pressure immeasurable [None]
  - Hyperhidrosis [None]
